FAERS Safety Report 5156338-6 (Version None)
Quarter: 2006Q4

REPORT INFORMATION
  Report Type: 
  Country: None (occurrence: None)
  Receive Date: 20061122
  Receipt Date: 20061114
  Transmission Date: 20070319
  Serious: Yes (Life-Threatening, Hospitalization)
  Sender: FDA-Public Use
  Company Number: ES-GLAXOSMITHKLINE-B0447324A

PATIENT
  Age: 65 Year
  Sex: Male

DRUGS (3)
  1. AUGMENTIN '125' [Suspect]
     Indication: SURGERY
     Dosage: 2TAB TWICE PER DAY
     Route: 048
     Dates: start: 20060310, end: 20060320
  2. ZAMENE [Suspect]
     Indication: SURGERY
     Route: 048
     Dates: start: 20060310, end: 20060314
  3. NOLOTIL [Suspect]
     Indication: SURGERY
     Route: 048
     Dates: start: 20060310, end: 20060314

REACTIONS (2)
  - GASTRITIS [None]
  - GASTROINTESTINAL HAEMORRHAGE [None]
